FAERS Safety Report 4494275-0 (Version None)
Quarter: 2004Q4

REPORT INFORMATION
  Report Type: 
  Country: None (occurrence: None)
  Receive Date: 20041102
  Receipt Date: 20041025
  Transmission Date: 20050328
  Serious: Yes (Hospitalization)
  Sender: FDA-Public Use
  Company Number: B0347083A

PATIENT
  Sex: Female

DRUGS (2)
  1. AUGMENTIN '250' [Suspect]
     Dosage: 1 GRAM(S) TWICE PER DAY/ORAL
     Route: 048
  2. MINULET [Concomitant]

REACTIONS (2)
  - OEDEMA [None]
  - URTICARIA [None]
